FAERS Safety Report 5066778-1 (Version None)
Quarter: 2006Q3

REPORT INFORMATION
  Report Type: 
  Country: None (occurrence: None)
  Receive Date: 20060801
  Receipt Date: 20060330
  Transmission Date: 20061208
  Serious: Yes (Hospitalization)
  Sender: FDA-Public Use
  Company Number: IT-ROCHE-442922

PATIENT
  Age: 65 Year
  Sex: Male

DRUGS (4)
  1. TICLID [Suspect]
     Indication: ANGIOPLASTY
     Dosage: OTHER INDICATION: MEDICATED STENT PLACEMENT
     Route: 048
     Dates: start: 20060111, end: 20060303
  2. ASPIRIN [Concomitant]
     Indication: ANGIOPLASTY
     Dosage: OTHER INDICATION: MEDICATED STENT PLACEMENT
     Route: 048
     Dates: start: 20060111
  3. TORVAST [Concomitant]
     Indication: ANGIOPLASTY
     Dosage: 40MG OD GIVEN 11 JANUARY 2006 TUNTIL AND UNKNOWN DATE AND 20 MG OD FROM AN UNKNOWN DATE AND CONTINU+
     Route: 048
     Dates: start: 20060111
  4. BIFRIL [Concomitant]
     Indication: ANGIOPLASTY
     Dosage: OTHER INDICATION: MEDICATED STENT PLACEMENT
     Route: 048
     Dates: start: 20060111

REACTIONS (4)
  - BONE MARROW FAILURE [None]
  - BRONCHOPNEUMONIA [None]
  - IMMUNODEFICIENCY [None]
  - LEUKOPENIA [None]
